FAERS Safety Report 9825603 (Version 1)
Quarter: 2014Q1

REPORT INFORMATION
  Report Type: Report from Study
  Country: US (occurrence: US)
  Receive Date: 20140117
  Receipt Date: 20140117
  Transmission Date: 20141002
  Serious: No
  Sender: FDA-Public Use
  Company Number: PHEH2014US001224

PATIENT
  Age: 84 Year
  Sex: Male

DRUGS (2)
  1. TASIGNA [Suspect]
     Dosage: 200 MG, DAILY
     Route: 048
     Dates: start: 201302
  2. LEVOTHYROXINE [Concomitant]

REACTIONS (1)
  - Alopecia [Not Recovered/Not Resolved]
